FAERS Safety Report 8674574 (Version 8)
Quarter: 2012Q4

REPORT INFORMATION
  Report Type: 
  Country: US (occurrence: US)
  Receive Date: 20120720
  Receipt Date: 20121105
  Transmission Date: 20130627
  Serious: Yes (Hospitalization, Other)
  Sender: FDA-Public Use
  Company Number: US-PFIZER INC-2012175023

PATIENT
  Age: 82 Year
  Sex: Female

DRUGS (10)
  1. POTASSIUM CHLORIDE [Concomitant]
     Dosage: 20 mEq, 1x/day
     Route: 048
  2. WARFARIN [Concomitant]
     Dosage: 3 mg saturday and per instuction
  3. HEPARIN SODIUM [Suspect]
     Indication: ANTICOAGULANT THERAPY
     Dosage: 2000 IU, single
     Route: 013
     Dates: start: 20120718, end: 20120718
  4. HEPARIN SODIUM [Suspect]
     Dosage: 1000 IU, single
     Route: 013
     Dates: start: 20120718, end: 20120718
  5. AMIODARONE [Concomitant]
     Dosage: 100 mg, 2x/day
  6. ATORVASTATIN [Concomitant]
     Dosage: 40 mg, 1x/day
  7. SALMETEROL XINAFOATE/FLUTICASONE PROPIONATE [Concomitant]
     Dosage: 1 DF, 2x/day
  8. FUROSEMIDE [Concomitant]
     Dosage: 10 mg, daily
  9. LISINOPRIL [Concomitant]
     Dosage: 2.5 mg, 1x/day
  10. NAMENDA [Concomitant]
     Dosage: 10 mg, 2x/day

REACTIONS (5)
  - Haematoma [Recovered/Resolved]
  - Peripheral artery thrombosis [Recovered/Resolved]
  - Embolism [Recovered/Resolved]
  - Haemorrhage [Recovered/Resolved]
  - Vascular pseudoaneurysm [Recovered/Resolved]
